FAERS Safety Report 4910804-4 (Version None)
Quarter: 2006Q1

REPORT INFORMATION
  Report Type: 
  Country: None (occurrence: None)
  Receive Date: 20060214
  Receipt Date: 20050728
  Transmission Date: 20060701
  Serious: Yes (Other)
  Sender: FDA-Public Use
  Company Number: US-GLAXOSMITHKLINE-A0568193A

PATIENT
  Age: 40 Year
  Sex: Male
  Weight: 116.8 kg

DRUGS (3)
  1. PAXIL [Suspect]
     Indication: DEPRESSION
     Route: 048
     Dates: start: 19940101, end: 20031106
  2. ERYTHROMYCIN 2% TOPICAL GEL [Concomitant]
  3. CLARITIN [Concomitant]

REACTIONS (16)
  - AGITATION [None]
  - AKATHISIA [None]
  - DRUG WITHDRAWAL SYNDROME [None]
  - HOSTILITY [None]
  - IMPULSIVE BEHAVIOUR [None]
  - INTERMITTENT EXPLOSIVE DISORDER [None]
  - IRRITABILITY [None]
  - MUSCLE SPASMS [None]
  - NIGHTMARE [None]
  - PSYCHIATRIC SYMPTOM [None]
  - RESTLESSNESS [None]
  - SOCIAL AVOIDANT BEHAVIOUR [None]
  - SOMNOLENCE [None]
  - SUICIDAL IDEATION [None]
  - SUICIDE ATTEMPT [None]
  - TENSION [None]
